FAERS Safety Report 8598646-2 (Version None)
Quarter: 2012Q3

REPORT INFORMATION
  Report Type: 
  Country: None (occurrence: None)
  Receive Date: 20120816
  Receipt Date: 20120112
  Transmission Date: 20120928
  Serious: Yes (Hospitalization)
  Sender: FDA-Public Use
  Company Number: US-ROCHE-1100510

PATIENT
  Age: 62 Year
  Sex: Male

DRUGS (4)
  1. LOPRESSOR [Concomitant]
  2. HEPARIN [Concomitant]
  3. ACTIVASE [Suspect]
     Indication: ACUTE MYOCARDIAL INFARCTION
  4. ASPIRIN [Concomitant]

REACTIONS (3)
  - VENTRICULAR TACHYCARDIA [None]
  - BLOOD CREATINE PHOSPHOKINASE INCREASED [None]
  - VENTRICULAR EXTRASYSTOLES [None]
